FAERS Safety Report 5270971-2 (Version None)
Quarter: 2007Q1

REPORT INFORMATION
  Report Type: 
  Country: None (occurrence: None)
  Receive Date: 20061214
  Receipt Date: 20060925
  Transmission Date: 20070707
  Serious: Yes (Hospitalization)
  Sender: FDA-Public Use
  Company Number: 2006122170

PATIENT
  Sex: Female

DRUGS (2)
  1. BEXTRA [Suspect]
     Dates: start: 20040930, end: 20050407
  2. VIOXX [Suspect]
     Dates: start: 20020601, end: 20040930

REACTIONS (1)
  - THROMBOSIS [None]
